FAERS Safety Report 25383014 (Version 1)
Quarter: 2025Q2

REPORT INFORMATION
  Report Type: Spontaneous
  Country: US (occurrence: US)
  Receive Date: 20250602
  Receipt Date: 20250602
  Transmission Date: 20250716
  Serious: No
  Sender: ROCHE
  Company Number: US-ROCHE-10000290968

PATIENT
  Age: 85 Year
  Sex: Female
  Weight: 57.15 kg

DRUGS (2)
  1. ACTEMRA [Suspect]
     Active Substance: TOCILIZUMAB
     Indication: Giant cell arteritis
     Dosage: ONGOING
     Route: 058
     Dates: start: 202409
  2. ACTEMRA [Suspect]
     Active Substance: TOCILIZUMAB
     Dosage: NO
     Route: 058
     Dates: start: 2021

REACTIONS (6)
  - Underdose [Unknown]
  - Exposure via skin contact [Unknown]
  - Osteoporosis [Not Recovered/Not Resolved]
  - Injury associated with device [Recovered/Resolved]
  - Aortitis [Not Recovered/Not Resolved]
  - Device issue [Unknown]

NARRATIVE: CASE EVENT DATE: 20250501
